FAERS Safety Report 17316441 (Version 2)
Quarter: 2020Q1

REPORT INFORMATION
  Report Type: Report from Study
  Country: BR (occurrence: BR)
  Receive Date: 20200124
  Receipt Date: 20200129
  Transmission Date: 20200409
  Serious: Yes (Death, Other)
  Sender: FDA-Public Use
  Company Number: NVSC2020BR017585

PATIENT
  Sex: Male

DRUGS (1)
  1. SANDOSTATIN LAR DEPOT [Suspect]
     Active Substance: OCTREOTIDE ACETATE
     Indication: PRODUCT USED FOR UNKNOWN INDICATION
     Route: 065

REACTIONS (9)
  - Penis disorder [Unknown]
  - Drug ineffective [Unknown]
  - Depression [Unknown]
  - General physical condition abnormal [Unknown]
  - Malaise [Unknown]
  - Suicidal ideation [Unknown]
  - Depressed mood [Unknown]
  - Death [Fatal]
  - Apathy [Unknown]
